FAERS Safety Report 21808795 (Version 1)
Quarter: 2023Q1

REPORT INFORMATION
  Report Type: Spontaneous
  Country: US (occurrence: US)
  Receive Date: 20230103
  Receipt Date: 20230103
  Transmission Date: 20230417
  Serious: No
  Sender: FDA-Public Use
  Company Number: US-Accord-245884

PATIENT
  Sex: Female

DRUGS (1)
  1. SERTRALINE HYDROCHLORIDE [Suspect]
     Active Substance: SERTRALINE HYDROCHLORIDE
     Indication: Lyme disease
     Dosage: DOSE: 75MG/ 50MG TABLET AND (1/2) 50 MG /ONCE A DAY
     Route: 048
     Dates: start: 20211116

REACTIONS (4)
  - Migraine [Not Recovered/Not Resolved]
  - Off label use [Unknown]
  - Product dispensing error [Unknown]
  - Product substitution issue [Unknown]
